FAERS Safety Report 4514983-2 (Version None)
Quarter: 2004Q4

REPORT INFORMATION
  Report Type: 
  Country: None (occurrence: None)
  Receive Date: 20041126
  Receipt Date: 20041116
  Transmission Date: 20050328
  Serious: Yes (Hospitalization, Other)
  Sender: FDA-Public Use
  Company Number: 2004094313

PATIENT
  Age: 53 Year
  Sex: Male

DRUGS (2)
  1. NORVASC [Suspect]
     Indication: ILL-DEFINED DISORDER
     Dosage: 5 MG (5 MG, 1 IN 1 D), ORAL
     Route: 048
  2. VIAGRA [Suspect]
     Indication: ERECTILE DYSFUNCTION
     Dosage: (50 MG, AS NECESSARY), ORAL
     Route: 048

REACTIONS (5)
  - ALCOHOL POISONING [None]
  - CEREBRAL HAEMORRHAGE [None]
  - ERECTILE DYSFUNCTION [None]
  - MUSCLE SPASMS [None]
  - PARALYSIS [None]
